FAERS Safety Report 9611471 (Version 2)
Quarter: 2013Q4

REPORT INFORMATION
  Report Type: Spontaneous
  Country: GR (occurrence: GR)
  Receive Date: 20131010
  Receipt Date: 20131108
  Transmission Date: 20140711
  Serious: Yes (Other)
  Sender: FDA-Public Use
  Company Number: GR-009507513-1310GRC002770

PATIENT
  Age: 39 Year
  Sex: Female

DRUGS (1)
  1. MAXALT RAP SOL TAB [Suspect]
     Indication: HEADACHE
     Dosage: WHEN NECESSARY STARTED MORE THAN 5 YEARS AGO
     Route: 048

REACTIONS (2)
  - Ventriculo-cardiac shunt [Unknown]
  - Off label use [Unknown]
